FAERS Safety Report 20117495 (Version 2)
Quarter: 2021Q4

REPORT INFORMATION
  Report Type: Other
  Country: LB (occurrence: LB)
  Receive Date: 20211126
  Receipt Date: 20211210
  Transmission Date: 20220303
  Serious: Yes (Hospitalization, Disabling, Other)
  Sender: FDA-Public Use
  Company Number: LB-002147023-NVSC2021LB240552

PATIENT
  Sex: Male
  Weight: 110 kg

DRUGS (8)
  1. LUCENTIS [Suspect]
     Active Substance: RANIBIZUMAB
     Indication: Diabetic retinal oedema
     Dosage: 3 DF, TOTAL OF 3 INJECTIONS IN RIGHT EYE
     Route: 031
  2. LUCENTIS [Suspect]
     Active Substance: RANIBIZUMAB
     Dosage: 9 DF, 9 INJECTIONS IN THE RIGHT EYE THROUGH THE PROGRAM
     Route: 031
  3. LUCENTIS [Suspect]
     Active Substance: RANIBIZUMAB
     Dosage: 20 MG/ML, TOOK 2 INJECTIONS IN BOTH EYE
     Route: 031
     Dates: start: 20210715
  4. LUCENTIS [Suspect]
     Active Substance: RANIBIZUMAB
     Dosage: 20 MG/ML (LAST DOSE)
     Route: 031
     Dates: start: 20210915, end: 20210915
  5. LUCENTIS [Suspect]
     Active Substance: RANIBIZUMAB
     Dosage: QD (20 MG/ML) (INTRAVITREAL).
     Route: 050
     Dates: start: 20211124
  6. MIXTARD HUMAN 70/30 [Concomitant]
     Active Substance: INSULIN HUMAN
  7. JANUMET [Concomitant]
     Active Substance: METFORMIN HYDROCHLORIDE\SITAGLIPTIN PHOSPHATE
  8. TRUSOPT [Concomitant]
     Active Substance: DORZOLAMIDE HYDROCHLORIDE

REACTIONS (5)
  - Oedema peripheral [Recovering/Resolving]
  - Vision blurred [Not Recovered/Not Resolved]
  - Cardiac disorder [Recovered/Resolved]
  - Tachycardia [Recovered/Resolved]
  - Product availability issue [Unknown]

NARRATIVE: CASE EVENT DATE: 20211017
